FAERS Safety Report 7712058-2 (Version None)
Quarter: 2011Q3

REPORT INFORMATION
  Report Type: 
  Country: None (occurrence: None)
  Receive Date: 20110826
  Receipt Date: 20110812
  Transmission Date: 20111222
  Serious: Yes (Hospitalization)
  Sender: FDA-Public Use
  Company Number: ES-JNJFOC-2007338189

PATIENT
  Age: 85 Year
  Sex: Female

DRUGS (3)
  1. ACETAMINOPHEN [Suspect]
     Indication: OSTEOARTHRITIS
     Dosage: DAILY DOSE TEXT: 1950 MG PER DAY
     Route: 048
  2. ACETAMINOPHEN [Suspect]
     Route: 048
  3. ALCOHOL [Suspect]
     Indication: PRODUCT USED FOR UNKNOWN INDICATION
     Dosage: DAILY DOSE TEXT: LESS THAN 10 G PER DAY
     Route: 048

REACTIONS (2)
  - LIVER INJURY [None]
  - IDIOPATHIC THROMBOCYTOPENIC PURPURA [None]
